FAERS Safety Report 7809821-6 (Version None)
Quarter: 2011Q4

REPORT INFORMATION
  Report Type: 
  Country: None (occurrence: None)
  Receive Date: 20111012
  Receipt Date: 20111006
  Transmission Date: 20120403
  Serious: Yes (Death)
  Sender: FDA-Public Use
  Company Number: FR-PFIZER INC-2011224089

PATIENT
  Age: 80 Year
  Sex: Male

DRUGS (1)
  1. SUTENT [Suspect]
     Indication: RENAL CELL CARCINOMA
     Dosage: 37.5 UNK, UNK

REACTIONS (4)
  - CACHEXIA [None]
  - DISEASE PROGRESSION [None]
  - RENAL CELL CARCINOMA [None]
  - MALNUTRITION [None]
